FAERS Safety Report 18523932 (Version 2)
Quarter: 2022Q2

REPORT INFORMATION
  Report Type: Spontaneous
  Country: JP (occurrence: JP)
  Receive Date: 20201119
  Receipt Date: 20220624
  Transmission Date: 20220720
  Serious: Yes (Other)
  Sender: FDA-Public Use
  Company Number: JP-TEVA-2020-JP-1850985

PATIENT
  Age: 66 Year
  Sex: Male

DRUGS (7)
  1. CARBOPLATIN [Suspect]
     Active Substance: CARBOPLATIN
     Indication: Malignant neoplasm of unknown primary site
     Dosage: AS PART OF INDUCTION CHEMOTHERAPY ALONG WITH CISPLATIN AND PEMBROLIZUMAB
     Route: 065
  2. PEMETREXED [Suspect]
     Active Substance: PEMETREXED
     Indication: Malignant neoplasm of unknown primary site
     Dosage: UNKNOWN DOSAGE, ALONG WITH CISPLATIN AND PEMBROLIZUMAB
     Route: 065
  3. PEMETREXED [Suspect]
     Active Substance: PEMETREXED
     Dosage: ON DAY 1; ALONG WITH CARBOPLATIN AND PEMBROLIZUMAB (AS PART OF INDUCTION THERAPY FOR SIX CYCLES)
     Route: 042
  4. PEMETREXED [Suspect]
     Active Substance: PEMETREXED
     Dosage: MAINTENANCE THERAPY
     Route: 065
  5. PEMBROLIZUMAB [Suspect]
     Active Substance: PEMBROLIZUMAB
     Indication: Malignant neoplasm of unknown primary site
     Dosage: UNKNOWN DOSAGE, ALONG WITH CISPLATIN AND PEMETREXED
     Route: 065
  6. PEMBROLIZUMAB [Suspect]
     Active Substance: PEMBROLIZUMAB
     Dosage: ALONG WITH CARBOPLATIN AND PEMETREXED, AS PART OF INDUCTION THERAPY FOR SIX CYCLES
     Route: 065
  7. CISPLATIN [Suspect]
     Active Substance: CISPLATIN
     Indication: Malignant neoplasm of unknown primary site
     Route: 065

REACTIONS (3)
  - Nephropathy toxic [Unknown]
  - Pancytopenia [Unknown]
  - Fatigue [Unknown]
